FAERS Safety Report 11805961 (Version 1)
Quarter: 2015Q4

REPORT INFORMATION
  Report Type: Spontaneous
  Country: US (occurrence: None)
  Receive Date: 20151204
  Receipt Date: 20151204
  Transmission Date: 20160305
  Serious: Yes (Other)
  Sender: FDA-Public Use
  Company Number: None

PATIENT
  Age: 23 Year
  Sex: Male

DRUGS (2)
  1. PAXIL [Suspect]
     Active Substance: PAROXETINE HYDROCHLORIDE
     Indication: GENERALISED ANXIETY DISORDER
     Dosage: 1 PILL
     Route: 048
     Dates: start: 20150907
  2. MELANTONIN [Concomitant]

REACTIONS (10)
  - Hyperventilation [None]
  - Panic attack [None]
  - Hypomania [None]
  - Urine odour abnormal [None]
  - Weight increased [None]
  - Vision blurred [None]
  - Dizziness [None]
  - Peripheral coldness [None]
  - Increased appetite [None]
  - Insomnia [None]

NARRATIVE: CASE EVENT DATE: 20150907
